FAERS Safety Report 4525850-2 (Version None)
Quarter: 2004Q4

REPORT INFORMATION
  Report Type: 
  Country: None (occurrence: None)
  Receive Date: 20041213
  Receipt Date: 20020516
  Transmission Date: 20050328
  Serious: Yes (Hospitalization, Other)
  Sender: FDA-Public Use
  Company Number: US-MERCK-0205USA02097

PATIENT
  Age: 50 Year
  Sex: Male
  Weight: 99 kg

DRUGS (23)
  1. INSULIN [Concomitant]
     Route: 065
  2. COREG [Concomitant]
     Route: 065
  3. ASPIRIN [Concomitant]
     Route: 065
     Dates: start: 19960701
  4. ALLOPURINOL [Concomitant]
     Route: 065
  5. ALLOPURINOL [Concomitant]
     Route: 065
     Dates: end: 20030101
  6. FUROSEMIDE [Concomitant]
     Route: 065
  7. GLIPIZIDE [Concomitant]
     Route: 065
  8. ACTOS [Concomitant]
     Route: 065
  9. NEURONTIN [Concomitant]
     Route: 065
  10. SPIRONOLACTONE [Concomitant]
     Route: 065
  11. LOTENSIN [Concomitant]
     Route: 065
  12. LIPITOR [Concomitant]
     Route: 065
  13. GLUCOPHAGE [Concomitant]
     Route: 065
  14. PEPCID [Concomitant]
     Route: 065
  15. NITROGLYCERIN [Concomitant]
     Route: 065
  16. CARDIZEM [Concomitant]
     Route: 065
  17. CLOPIDOGREL BISULFATE [Concomitant]
     Route: 065
  18. COUMADIN [Concomitant]
     Route: 065
  19. GLYCINE [Concomitant]
     Route: 065
  20. FLUVASTATIN SODIUM [Concomitant]
     Route: 065
  21. TRAZODONE HYDROCHLORIDE [Concomitant]
     Route: 065
  22. CELEBREX [Concomitant]
     Route: 065
  23. VIOXX [Suspect]
     Indication: ARTHRALGIA
     Route: 048
     Dates: start: 19990101, end: 20010101

REACTIONS (45)
  - ANAEMIA [None]
  - ANGINA UNSTABLE [None]
  - AORTIC STENOSIS [None]
  - ATRIAL FIBRILLATION [None]
  - CARDIAC FAILURE CONGESTIVE [None]
  - CHEST PAIN [None]
  - CHRONIC OBSTRUCTIVE AIRWAYS DISEASE [None]
  - COAGULATION TIME PROLONGED [None]
  - COLONIC POLYP [None]
  - CORONARY ARTERY DISEASE [None]
  - CORONARY ARTERY OCCLUSION [None]
  - COUGH [None]
  - DEHYDRATION [None]
  - DIABETIC FOOT [None]
  - DIABETIC RETINOPATHY [None]
  - DIVERTICULUM [None]
  - DYSPNOEA [None]
  - EMOTIONAL DISTRESS [None]
  - EPISTAXIS [None]
  - ERECTILE DYSFUNCTION [None]
  - GOUTY ARTHRITIS [None]
  - HYPOTHYROIDISM [None]
  - ISCHAEMIC CARDIOMYOPATHY [None]
  - MITRAL VALVE INCOMPETENCE [None]
  - MITRAL VALVE PROLAPSE [None]
  - MYASTHENIA GRAVIS [None]
  - MYOCARDIAL INFARCTION [None]
  - NEUROPATHIC PAIN [None]
  - OEDEMA PERIPHERAL [None]
  - OPEN ANGLE GLAUCOMA [None]
  - OVERDOSE [None]
  - PALPITATIONS [None]
  - PEPTIC ULCER [None]
  - PERIPHERAL OCCLUSIVE DISEASE [None]
  - PULMONARY HYPERTENSION [None]
  - PULMONARY OEDEMA [None]
  - RENAL FAILURE [None]
  - RESPIRATORY FAILURE [None]
  - SLEEP APNOEA SYNDROME [None]
  - SLEEP DISORDER [None]
  - SYNCOPE [None]
  - VASCULAR GRAFT OCCLUSION [None]
  - VASCULAR OCCLUSION [None]
  - VENTRICULAR EXTRASYSTOLES [None]
  - VITREOUS HAEMORRHAGE [None]
